FAERS Safety Report 20142358 (Version 1)
Quarter: 2021Q4

REPORT INFORMATION
  Report Type: Spontaneous
  Country: ES (occurrence: ES)
  Receive Date: 20211202
  Receipt Date: 20211202
  Transmission Date: 20220303
  Serious: Yes (Hospitalization, Other)
  Sender: FDA-Public Use
  Company Number: ES-ALLERGAN-2140683US

PATIENT
  Sex: Female
  Weight: 55 kg

DRUGS (1)
  1. DEOXYCHOLIC ACID [Suspect]
     Active Substance: DEOXYCHOLIC ACID
     Indication: Product used for unknown indication
     Dosage: UNK UNK, SINGLE
     Route: 058

REACTIONS (2)
  - Acute kidney injury [Unknown]
  - Renal papillary necrosis [Unknown]
